FAERS Safety Report 6384477-0 (Version None)
Quarter: 2009Q4

REPORT INFORMATION
  Report Type: 
  Country: None (occurrence: None)
  Receive Date: 20091001
  Receipt Date: 20090924
  Transmission Date: 20100525
  Serious: Yes (Death, Hospitalization)
  Sender: FDA-Public Use
  Company Number: LB-NOVOPROD-289535

PATIENT
  Age: 16 Year
  Sex: Male
  Weight: 70 kg

DRUGS (3)
  1. NOVOSEVEN [Suspect]
     Indication: DRUG USE FOR UNKNOWN INDICATION
     Dosage: 90 UG/KG,
     Route: 042
  2. NOVOSEVEN [Suspect]
     Dosage: 70 UG/KG, UNK
     Route: 042
  3. OCTREOTIDE ACETATE [Concomitant]
     Dosage: CONTINIOUS INFUSION

REACTIONS (1)
  - CARDIAC ARREST [None]
